FAERS Safety Report 18072294 (Version 1)
Quarter: 2020Q3

REPORT INFORMATION
  Report Type: Spontaneous
  Country: US (occurrence: US)
  Receive Date: 20200726
  Receipt Date: 20200726
  Transmission Date: 20201103
  Serious: Yes (Hospitalization)
  Sender: FDA-Public Use
  Company Number: None

PATIENT
  Age: 69 Year
  Sex: Female

DRUGS (4)
  1. LITHIUM ER 450MG [Concomitant]
  2. LOSARTAN. [Suspect]
     Active Substance: LOSARTAN
     Indication: RENAL DISORDER PROPHYLAXIS
     Route: 048
  3. LITHIUM. [Suspect]
     Active Substance: LITHIUM
     Route: 048
  4. LOSARTAN 50MG [Concomitant]
     Active Substance: LOSARTAN
     Dates: start: 20190924, end: 20200724

REACTIONS (2)
  - Drug interaction [None]
  - Toxicity to various agents [None]

NARRATIVE: CASE EVENT DATE: 20200726
